FAERS Safety Report 21386971 (Version 3)
Quarter: 2022Q4

REPORT INFORMATION
  Report Type: Spontaneous
  Country: JP (occurrence: JP)
  Receive Date: 20220928
  Receipt Date: 20221213
  Transmission Date: 20230113
  Serious: Yes (Life-Threatening, Other)
  Sender: FDA-Public Use
  Company Number: JP-PFIZER INC-PV202200067857

PATIENT
  Age: 72 Year
  Sex: Male
  Weight: 66.6 kg

DRUGS (12)
  1. VYNDAQEL [Suspect]
     Active Substance: TAFAMIDIS MEGLUMINE
     Indication: Cardiac amyloidosis
     Dosage: 80 MG, DAILY
     Route: 048
     Dates: start: 20220719
  2. BISOPROLOL FUMARATE [Suspect]
     Active Substance: BISOPROLOL FUMARATE
     Dosage: 0.625 MG, 1X/DAY
     Route: 048
     Dates: end: 20220928
  3. CRESTOR [Concomitant]
     Active Substance: ROSUVASTATIN CALCIUM
     Dosage: 5 MG, 1X/DAY
     Route: 048
  4. VONOPRAZAN FUMARATE [Concomitant]
     Active Substance: VONOPRAZAN FUMARATE
     Dosage: 10 MG, 1X/DAY
     Route: 048
  5. LASIX [Concomitant]
     Active Substance: FUROSEMIDE
     Dosage: 20 MG, 1X/DAY
     Route: 048
  6. TOLVAPTAN [Concomitant]
     Active Substance: TOLVAPTAN
     Dosage: 15 MG, 1X/DAY
     Route: 048
  7. ENTRESTO [Concomitant]
     Active Substance: SACUBITRIL\VALSARTAN
     Dosage: 50 MG, 1X/DAY
     Route: 048
  8. DAPAGLIFLOZIN [Concomitant]
     Active Substance: DAPAGLIFLOZIN
     Dosage: 10 MG, 1X/DAY
     Route: 048
  9. VERQUVO [Concomitant]
     Active Substance: VERICIGUAT
     Dosage: 5 MG, 1X/DAY
     Route: 048
  10. URSO [Concomitant]
     Active Substance: URSODIOL
     Dosage: 300 MG, 3X/DAY
     Route: 048
  11. LEVOTHYROXINE SODIUM [Concomitant]
     Active Substance: LEVOTHYROXINE SODIUM
     Dosage: 112.5 UG, 1X/DAY
     Route: 048
  12. RYBELSUS [Concomitant]
     Active Substance: SEMAGLUTIDE
     Dosage: 3 MG, 1X/DAY
     Route: 048

REACTIONS (8)
  - Bradyarrhythmia [Recovered/Resolved]
  - Hypothyroidism [Unknown]
  - Condition aggravated [Unknown]
  - Syncope [Unknown]
  - Atrial fibrillation [Unknown]
  - Fatigue [Unknown]
  - Lethargy [Unknown]
  - Weight fluctuation [Unknown]

NARRATIVE: CASE EVENT DATE: 20220801
